FAERS Safety Report 5280967-2 (Version None)
Quarter: 2007Q1

REPORT INFORMATION
  Report Type: 
  Country: None (occurrence: None)
  Receive Date: 20061229
  Receipt Date: 20060921
  Transmission Date: 20070707
  Serious: Yes (Other)
  Sender: FDA-Public Use
  Company Number: 2006UW18456

PATIENT
  Age: 80 Year
  Sex: Male
  Weight: 77.11 kg

DRUGS (10)
  1. CRESTOR [Suspect]
     Indication: BLOOD CHOLESTEROL INCREASED
     Dosage: 5 MG QD PO
     Route: 048
     Dates: start: 20060911
  2. TOPROL-XL [Concomitant]
  3. TYLENOL [Concomitant]
  4. ASCORBIC ACID [Concomitant]
  5. CENTRUM SILVER [Concomitant]
  6. FINASTERIDE [Concomitant]
  7. ASPIRIN [Concomitant]
  8. GLUCOSAMINE [Concomitant]
  9. VITAMIN B-12 [Concomitant]
  10. FOLIC ACID [Concomitant]

REACTIONS (2)
  - ERYTHEMA [None]
  - PRURITUS [None]
